FAERS Safety Report 9651512 (Version 1)
Quarter: 2013Q4

REPORT INFORMATION
  Report Type: Spontaneous
  Country: US (occurrence: US)
  Receive Date: 20131029
  Receipt Date: 20131029
  Transmission Date: 20140711
  Serious: No
  Sender: FDA-Public Use
  Company Number: US-PFIZER INC-2013307645

PATIENT
  Age: 53 Year
  Sex: Female
  Weight: 39.91 kg

DRUGS (10)
  1. CHANTIX [Suspect]
     Indication: SMOKING CESSATION THERAPY
     Dosage: 0.5 MG, 1X/DAY
     Route: 048
     Dates: start: 2010
  2. CHANTIX [Suspect]
     Dosage: 0.5 MG, 1X/DAY
     Route: 048
     Dates: start: 20131016, end: 201310
  3. CHANTIX [Suspect]
     Dosage: 0.5 MG, 2X/DAY
     Route: 048
     Dates: start: 201310, end: 20131024
  4. ASPIRIN [Concomitant]
     Dosage: 81 MG, UNK
  5. CALCIUM [Concomitant]
     Dosage: UNK
  6. VITAMIN D [Concomitant]
     Dosage: UNK
  7. DEPAKOTE [Concomitant]
     Dosage: UNK
  8. LEVOTHYROXINE [Concomitant]
     Dosage: UNK
  9. TOPAMAX [Concomitant]
     Dosage: UNK
  10. LEFLUNOMIDE [Concomitant]
     Dosage: UNK

REACTIONS (3)
  - Malaise [Not Recovered/Not Resolved]
  - Vomiting [Not Recovered/Not Resolved]
  - Dehydration [Not Recovered/Not Resolved]
